FAERS Safety Report 8531468-7 (Version None)
Quarter: 2012Q3

REPORT INFORMATION
  Report Type: 
  Country: None (occurrence: None)
  Receive Date: 20120723
  Receipt Date: 20120712
  Transmission Date: 20120928
  Serious: Yes (Hospitalization)
  Sender: FDA-Public Use
  Company Number: JP-VERTEX PHARMACEUTICALS INC.-AE-2012-006463

PATIENT
  Age: 63 Year
  Sex: Female

DRUGS (15)
  1. LEVOTHYROXINE SODIUM [Concomitant]
     Route: 048
  2. ENALAPRIL MALEATE [Concomitant]
     Route: 048
     Dates: start: 20120429, end: 20120522
  3. AMLODIPINE [Concomitant]
     Route: 048
  4. ENALAPRIL MALEATE [Concomitant]
     Route: 048
  5. LACB R [Concomitant]
     Route: 048
     Dates: start: 20120522, end: 20120529
  6. REBETOL [Concomitant]
     Route: 048
     Dates: start: 20120403, end: 20120424
  7. PEGINTRFERON ALFA-2B [Concomitant]
     Indication: HEPATITIS C
     Route: 058
     Dates: start: 20120313, end: 20120424
  8. FLOMAX [Concomitant]
     Route: 048
     Dates: start: 20120522, end: 20120527
  9. LANSOPRAZOLE [Concomitant]
     Route: 048
  10. TELAVIC (TELAPREVIR) [Suspect]
     Indication: HEPATITIS C
     Route: 048
     Dates: start: 20120313, end: 20120424
  11. LASIX [Concomitant]
     Route: 048
     Dates: start: 20120427, end: 20120427
  12. REBAMIPIDE OD [Concomitant]
     Route: 048
  13. PEGINTRFERON ALFA-2B [Concomitant]
     Route: 058
     Dates: start: 20120508
  14. REBETOL [Concomitant]
     Indication: HEPATITIS C
     Route: 048
     Dates: start: 20120313, end: 20120402
  15. AMLODIPINE [Concomitant]
     Route: 048
     Dates: end: 20120522

REACTIONS (1)
  - PYELONEPHRITIS [None]
